FAERS Safety Report 6289317-6 (Version None)
Quarter: 2009Q3

REPORT INFORMATION
  Report Type: 
  Country: None (occurrence: None)
  Receive Date: 20090730
  Receipt Date: 20090724
  Transmission Date: 20100115
  Serious: Yes (Hospitalization)
  Sender: FDA-Public Use
  Company Number: US-BIOGENIDEC-2009BI014908

PATIENT
  Age: 36 Year
  Sex: Female

DRUGS (2)
  1. AVONEX [Suspect]
     Indication: MULTIPLE SCLEROSIS
     Route: 030
     Dates: start: 20080910
  2. DEMEROL [Concomitant]

REACTIONS (5)
  - INFLUENZA LIKE ILLNESS [None]
  - INTRACRANIAL HYPOTENSION [None]
  - SUTURE RUPTURE [None]
  - TREMOR [None]
  - VOMITING [None]
